FAERS Safety Report 8261893-3 (Version None)
Quarter: 2012Q2

REPORT INFORMATION
  Report Type: 
  Country: None (occurrence: None)
  Receive Date: 20120405
  Receipt Date: 20120328
  Transmission Date: 20120825
  Serious: Yes (Other)
  Sender: FDA-Public Use
  Company Number: US-BAYER-2011-052335

PATIENT
  Age: 42 Year
  Sex: Female
  Weight: 79 kg

DRUGS (2)
  1. YAZ [Suspect]
     Dosage: UNK
     Route: 048
     Dates: start: 20080101
  2. YASMIN [Suspect]
     Dosage: UNK
     Route: 048
     Dates: start: 20030101, end: 20060101

REACTIONS (8)
  - DIARRHOEA [None]
  - CHOLECYSTITIS [None]
  - EMOTIONAL DISTRESS [None]
  - CHOLESTEROSIS [None]
  - BILIARY DYSKINESIA [None]
  - CHEST PAIN [None]
  - GALLBLADDER DISORDER [None]
  - BACK PAIN [None]
